FAERS Safety Report 5274642-8 (Version None)
Quarter: 2007Q1

REPORT INFORMATION
  Report Type: 
  Country: None (occurrence: None)
  Receive Date: 20070320
  Receipt Date: 20070307
  Transmission Date: 20070707
  Serious: Yes (Hospitalization, Disabling, Other)
  Sender: FDA-Public Use
  Company Number: 2007-00144

PATIENT
  Age: 58 Year
  Sex: Male
  Weight: 76.6 kg

DRUGS (24)
  1. VELCADE [Suspect]
     Indication: MULTIPLE MYELOMA
     Dosage: 1.30 MG/M2, IV BOLUS
     Route: 040
     Dates: start: 20061117, end: 20070105
  2. DEXAMETHASONE [Suspect]
     Indication: MULTIPLE MYELOMA
     Dosage: 20.00 MG, ORAL
     Route: 048
     Dates: start: 20061117, end: 20070106
  3. PREVACID [Concomitant]
  4. OXYCONTIN [Concomitant]
  5. LASIX [Concomitant]
  6. FLOMAX [Concomitant]
  7. ALDACTONE [Concomitant]
  8. ALLEGRA [Concomitant]
  9. FLONASE [Concomitant]
  10. OXYCODONE HCL [Concomitant]
  11. COUMADIN [Concomitant]
  12. VITAMIN B6 (VITAMIN B NOS) [Concomitant]
  13. POTASSIUM (POTASSIUM) [Concomitant]
  14. NEULASTA [Concomitant]
  15. ZYVOX [Concomitant]
  16. LEVAQUIN [Concomitant]
  17. DECADRON [Concomitant]
  18. DYAZIDE [Concomitant]
  19. ZYRTEC-D 12 HOUR [Concomitant]
  20. ZOFRAN [Concomitant]
  21. REGLAN [Concomitant]
  22. TOPROL-XL [Concomitant]
  23. ASPIRIN [Concomitant]
  24. MAGNESIUM (MAGNESIUM) [Concomitant]

REACTIONS (7)
  - ANAL FISSURE [None]
  - BUNDLE BRANCH BLOCK LEFT [None]
  - DEHYDRATION [None]
  - DIARRHOEA [None]
  - HAEMORRHOIDS [None]
  - HYPOCALCAEMIA [None]
  - SYNCOPE VASOVAGAL [None]
